FAERS Safety Report 6988894-7 (Version None)
Quarter: 2010Q3

REPORT INFORMATION
  Report Type: 
  Country: None (occurrence: None)
  Receive Date: 20100916
  Receipt Date: 20090724
  Transmission Date: 20110219
  Serious: Yes (Other)
  Sender: FDA-Public Use
  Company Number: GB-PFIZER INC-2009226190

PATIENT
  Sex: Male

DRUGS (1)
  1. LYRICA [Suspect]
     Dosage: UNK

REACTIONS (1)
  - CONVULSIVE THRESHOLD LOWERED [None]
